FAERS Safety Report 5193938-1 (Version None)
Quarter: 2006Q4

REPORT INFORMATION
  Report Type: 
  Country: None (occurrence: None)
  Receive Date: 20061228
  Receipt Date: 20061221
  Transmission Date: 20070319
  Serious: Yes (Hospitalization)
  Sender: FDA-Public Use
  Company Number: 2006AP06176

PATIENT
  Age: 80 Year

DRUGS (4)
  1. OMEPRAL [Suspect]
     Route: 048
     Dates: end: 20061220
  2. BUP-4 [Suspect]
     Route: 048
  3. URSO [Concomitant]
     Route: 048
  4. LASIX [Concomitant]

REACTIONS (2)
  - BLOOD CREATINE PHOSPHOKINASE INCREASED [None]
  - PNEUMONIA [None]
